FAERS Safety Report 10291234 (Version 2)
Quarter: 2014Q3

REPORT INFORMATION
  Report Type: Spontaneous
  Country: CZ (occurrence: None)
  Receive Date: 20140708
  Receipt Date: 20140716
  Transmission Date: 20150326
  Serious: Yes (Other)
  Sender: FDA-Public Use
  Company Number: AUR-APL-2014-06910

PATIENT
  Age: 59 Year
  Sex: Male

DRUGS (2)
  1. FLUCONAZOLE. [Suspect]
     Active Substance: FLUCONAZOLE
     Indication: CANDIDA INFECTION
  2. KETOCONAZOLE (KETOCONAZOLE) [Suspect]
     Active Substance: KETOCONAZOLE
     Indication: CANDIDA INFECTION

REACTIONS (5)
  - Polyarteritis nodosa [None]
  - Fungal test positive [None]
  - Encephalitis [None]
  - Cryptococcosis [None]
  - Drug effect decreased [None]
